FAERS Safety Report 5048588-4 (Version None)
Quarter: 2006Q3

REPORT INFORMATION
  Report Type: 
  Country: None (occurrence: None)
  Receive Date: 20060705
  Receipt Date: 20060628
  Transmission Date: 20061208
  Serious: Yes (Other)
  Sender: FDA-Public Use
  Company Number: DEWYE853328JUN06

PATIENT
  Age: 75 Year
  Sex: Female

DRUGS (1)
  1. VENLAFAXINE HCL [Suspect]

REACTIONS (1)
  - VITH NERVE PARALYSIS [None]
